FAERS Safety Report 9331460 (Version 1)
Quarter: 2013Q2

REPORT INFORMATION
  Report Type: Spontaneous
  Country: US (occurrence: US)
  Receive Date: 20130605
  Receipt Date: 20130605
  Transmission Date: 20140414
  Serious: Yes (Hospitalization)
  Sender: FDA-Public Use
  Company Number: US-TEVA-409666USA

PATIENT
  Age: 70 Year
  Sex: Male
  Weight: 77.18 kg

DRUGS (8)
  1. TREANDA [Suspect]
     Indication: NON-HODGKIN^S LYMPHOMA UNSPECIFIED HISTOLOGY INDOLENT
     Route: 042
     Dates: start: 20130514, end: 20130515
  2. ACYCLOVIR [Suspect]
     Indication: PROPHYLAXIS
     Route: 048
     Dates: end: 20130528
  3. RITUXIMAB [Concomitant]
     Dates: start: 20130513, end: 20130513
  4. ALLOPURINOL [Concomitant]
     Dates: start: 20130512, end: 20130518
  5. LISINOPRIL [Concomitant]
     Indication: HYPERTENSION
     Route: 048
     Dates: end: 20130530
  6. TOPROL [Concomitant]
     Indication: HYPERTENSION
     Route: 048
  7. BABY ASPIRIN [Concomitant]
     Route: 048
  8. VALTREX [Concomitant]
     Indication: PROPHYLAXIS
     Route: 048
     Dates: start: 20130530

REACTIONS (6)
  - Pyrexia [Recovered/Resolved]
  - Musculoskeletal pain [Recovered/Resolved]
  - Arthralgia [Not Recovered/Not Resolved]
  - Rash [Recovered/Resolved]
  - Joint swelling [Not Recovered/Not Resolved]
  - Flushing [Recovered/Resolved]
